FAERS Safety Report 12455903 (Version 2)
Quarter: 2016Q3

REPORT INFORMATION
  Report Type: Report from Study
  Country: AT (occurrence: AT)
  Receive Date: 20160610
  Receipt Date: 20160713
  Transmission Date: 20161109
  Serious: Yes (Hospitalization, Other)
  Sender: FDA-Public Use
  Company Number: AT-VELOXIS PHARMACEUTICALS-1053661

PATIENT
  Age: 60 Year
  Sex: Male
  Weight: 68.14 kg

DRUGS (21)
  1. EUSAPRIM [Concomitant]
  2. PANTOLOC [Concomitant]
     Active Substance: PANTOPRAZOLE SODIUM
     Dates: start: 20150113
  3. SANDIMMUNE [Concomitant]
     Active Substance: CYCLOSPORINE
  4. AEROMUC [Concomitant]
     Dates: start: 20160121
  5. CIPRALEX [Concomitant]
     Active Substance: ESCITALOPRAM OXALATE
     Dates: start: 20151114
  6. THROMBO ASS [Concomitant]
     Active Substance: ASPIRIN
     Dates: start: 20150113
  7. CONCOR [Concomitant]
     Active Substance: BISOPROLOL FUMARATE
  8. ARANESP [Concomitant]
     Active Substance: DARBEPOETIN ALFA
  9. CORTISONE [Concomitant]
     Active Substance: CORTISONE\HYDROCORTISONE
  10. HUMALOG 50 [Concomitant]
     Dates: start: 20160204
  11. ZINNAT [Concomitant]
     Active Substance: CEFUROXIME AXETIL
  12. OLEOVIT [Concomitant]
  13. HUMALOG 25 [Concomitant]
     Dates: start: 20160204
  14. NOVOMIX [Concomitant]
     Active Substance: INSULIN ASPART
  15. CYCLOSPORIN A [Concomitant]
     Active Substance: CYCLOSPORINE
  16. LOVENOX [Concomitant]
     Active Substance: ENOXAPARIN SODIUM
     Dates: start: 20160204
  17. ENVARSUS XR [Suspect]
     Active Substance: TACROLIMUS
     Indication: IMMUNOSUPPRESSANT DRUG THERAPY
     Route: 048
     Dates: start: 20160209
  18. PREDNISOLONE. [Concomitant]
     Active Substance: PREDNISOLONE
  19. MYFENAX [Concomitant]
     Active Substance: MYCOPHENOLATE MOFETIL
  20. SIMULECT [Concomitant]
     Active Substance: BASILIXIMAB
  21. AMLODIPINE [Concomitant]
     Active Substance: AMLODIPINE BESYLATE
     Dates: start: 20160204

REACTIONS (1)
  - Varicella zoster pneumonia [Recovered/Resolved]

NARRATIVE: CASE EVENT DATE: 20160321
